FAERS Safety Report 8863121 (Version 2)
Quarter: 2012Q4

REPORT INFORMATION
  Report Type: 
  Country: GB (occurrence: GB)
  Receive Date: 20121026
  Receipt Date: 20121030
  Transmission Date: 20130627
  Serious: Yes (Hospitalization, Other)
  Sender: FDA-Public Use
  Company Number: GB-ROCHE-1147715

PATIENT
  Sex: Male

DRUGS (1)
  1. RIVOTRIL [Suspect]
     Indication: EPILEPSY
     Route: 048

REACTIONS (5)
  - Loss of consciousness [Unknown]
  - Abnormal behaviour [Unknown]
  - Hypophagia [Unknown]
  - Depressed level of consciousness [Unknown]
  - Somnolence [Unknown]
